FAERS Safety Report 6786500-8 (Version None)
Quarter: 2010Q2

REPORT INFORMATION
  Report Type: 
  Country: None (occurrence: None)
  Receive Date: 20100623
  Receipt Date: 20100616
  Transmission Date: 20101027
  Serious: Yes (Other)
  Sender: FDA-Public Use
  Company Number: B0661251A

PATIENT
  Age: 81 Year
  Sex: Female

DRUGS (8)
  1. VALTREX [Suspect]
     Indication: DRUG USE FOR UNKNOWN INDICATION
     Dosage: 6IUAX PER DAY
     Route: 048
     Dates: start: 20100511, end: 20100513
  2. ASPIRIN [Concomitant]
     Route: 048
  3. WARFARIN [Concomitant]
     Route: 048
  4. FUROSEMIDE [Concomitant]
     Route: 048
  5. LANDSEN [Concomitant]
     Route: 048
  6. LENDORMIN [Concomitant]
     Route: 048
  7. NOVORAPID [Concomitant]
     Route: 058
  8. LEVEMIR [Concomitant]
     Route: 058

REACTIONS (4)
  - ALTERED STATE OF CONSCIOUSNESS [None]
  - CEREBRAL ATROPHY [None]
  - LACRIMATION INCREASED [None]
  - STUPOR [None]
